FAERS Safety Report 21689782 (Version 1)
Quarter: 2022Q4

REPORT INFORMATION
  Report Type: Spontaneous
  Country: US (occurrence: None)
  Receive Date: 20221205
  Receipt Date: 20221205
  Transmission Date: 20230113
  Serious: No
  Sender: FDA-Public Use
  Company Number: None

PATIENT
  Age: 33 Year
  Sex: Female

DRUGS (1)
  1. HUMIRA [Suspect]
     Active Substance: ADALIMUMAB
     Indication: Hidradenitis
     Dosage: FREQUENCY : EVERY OTHER WEEK;?
     Route: 058
     Dates: start: 202208

REACTIONS (7)
  - Malaise [None]
  - Productive cough [None]
  - Dyspnoea [None]
  - Nausea [None]
  - Fatigue [None]
  - Oedema peripheral [None]
  - Oedema peripheral [None]
